FAERS Safety Report 21346070 (Version 1)
Quarter: 2022Q3

REPORT INFORMATION
  Report Type: Spontaneous
  Country: US (occurrence: US)
  Receive Date: 20220917
  Receipt Date: 20220917
  Transmission Date: 20221026
  Serious: Yes (Other)
  Sender: FDA-Public Use
  Company Number: US-BRISTOL-MYERS SQUIBB COMPANY-2022-106100

PATIENT
  Age: 59 Year
  Sex: Female

DRUGS (2)
  1. OPDIVO [Suspect]
     Active Substance: NIVOLUMAB
     Indication: Product used for unknown indication
     Dosage: DOSE : UNAVAILABLE.;     FREQ : UNAVAILABLE.
     Route: 065
  2. TIVDAK [Concomitant]
     Active Substance: TISOTUMAB VEDOTIN-TFTV
     Indication: Cervix carcinoma

REACTIONS (13)
  - Hyperthyroidism [Unknown]
  - Neuropathy peripheral [Unknown]
  - Dyspnoea [Unknown]
  - Pain [Unknown]
  - Vaginal haemorrhage [Unknown]
  - Eye disorder [Unknown]
  - Depression [Unknown]
  - Vision blurred [Unknown]
  - Eye discharge [Unknown]
  - Eye pruritus [Unknown]
  - Dry eye [Unknown]
  - Burning sensation [Unknown]
  - Fatigue [Unknown]
